FAERS Safety Report 20730790 (Version 1)
Quarter: 2022Q2

REPORT INFORMATION
  Report Type: Spontaneous
  Country: US (occurrence: None)
  Receive Date: 20220418
  Receipt Date: 20220418
  Transmission Date: 20220721
  Serious: Yes (Life-Threatening)
  Sender: FDA-Public Use
  Company Number: None

PATIENT
  Age: 33 Year
  Sex: Male
  Weight: 99.79 kg

DRUGS (1)
  1. FLUDEOXYGLUCOSE F-18 [Suspect]
     Active Substance: FLUDEOXYGLUCOSE F-18
     Indication: X-ray with contrast
     Dosage: FREQUENCY : DAILY;?
     Dates: start: 20220215

REACTIONS (1)
  - Product measured potency issue [None]

NARRATIVE: CASE EVENT DATE: 20220215
